FAERS Safety Report 5378501-1 (Version None)
Quarter: 2007Q3

REPORT INFORMATION
  Report Type: 
  Country: None (occurrence: None)
  Receive Date: 20070702
  Receipt Date: 20070621
  Transmission Date: 20080115
  Serious: Yes (Hospitalization, Disabling)
  Sender: FDA-Public Use
  Company Number: 2007SP012392

PATIENT
  Age: 69 Year
  Sex: Male
  Weight: 65 kg

DRUGS (3)
  1. DIPROSONE [Suspect]
     Indication: IRRITABILITY
     Dosage: IM
     Route: 030
     Dates: start: 20070419, end: 20070419
  2. DIPROSONE [Suspect]
     Indication: NASAL MUCOSAL DISORDER
     Dosage: IM
     Route: 030
     Dates: start: 20070419, end: 20070419
  3. AMITRIPTYLINE HCL [Concomitant]

REACTIONS (1)
  - CEREBRAL THROMBOSIS [None]
